FAERS Safety Report 7740260-2 (Version None)
Quarter: 2011Q3

REPORT INFORMATION
  Report Type: 
  Country: None (occurrence: None)
  Receive Date: 20110909
  Receipt Date: 20110831
  Transmission Date: 20111222
  Serious: Yes (Other)
  Sender: FDA-Public Use
  Company Number: US-ROCHE-801181

PATIENT
  Age: 63 Year
  Sex: Male

DRUGS (8)
  1. FLOMAX [Concomitant]
  2. CAPTOPRIL [Concomitant]
  3. HYDROCHLOROTHIAZIDE [Concomitant]
  4. METOPROLOL TARTRATE [Concomitant]
  5. TELAPREVIR [Suspect]
     Route: 065
     Dates: start: 20110721, end: 20110809
  6. LEXAPRO [Concomitant]
  7. ANUSOL SUPPOSITORIES [Concomitant]
     Dosage: REPORTED AS EMUSOL SUPPOSITORIES
  8. PEGASYS [Suspect]
     Route: 065
     Dates: start: 20110721, end: 20110809

REACTIONS (4)
  - PROCTALGIA [None]
  - ABDOMINAL PAIN [None]
  - CORNEAL OPACITY [None]
  - VISION BLURRED [None]
